FAERS Safety Report 15678198 (Version 1)
Quarter: 2018Q4

REPORT INFORMATION
  Report Type: Spontaneous
  Country: ES (occurrence: ES)
  Receive Date: 20181201
  Receipt Date: 20181201
  Transmission Date: 20190205
  Serious: Yes (Hospitalization)
  Sender: FDA-Public Use
  Company Number: ES-TEVA-2018-ES-980851

PATIENT
  Age: 56 Year
  Sex: Male

DRUGS (10)
  1. RISPERDAL [Concomitant]
     Active Substance: RISPERIDONE
     Route: 065
  2. SEROQUEL 200 MG COMPRIMIDOS RECUBIERTOS CON PELICULA , 60 COMPRIMIDOS [Concomitant]
     Route: 065
  3. LINAGLIPTINA (8509A) [Concomitant]
     Route: 065
  4. LEVOFLOXACINO 500 MG COMPRIMIDO [Suspect]
     Active Substance: LEVOFLOXACIN
     Indication: BRONCHITIS
     Dosage: 500 MILLIGRAM DAILY;
     Route: 048
     Dates: start: 20181108, end: 20181108
  5. ALOPURINOL (318A) [Concomitant]
     Active Substance: ALLOPURINOL
     Route: 065
  6. EUTIROX  75 MICROGRAMOS COMPRIMIDOS , 100 COMPRIMIDOS [Concomitant]
     Route: 065
  7. SIMVASTATINA (1023A) [Concomitant]
     Active Substance: SIMVASTATIN
     Route: 065
  8. PLENUR COMPRIMIDOS DE LIBERACION MODIFICADA, 100 COMPRIMIDOS [Concomitant]
     Route: 065
  9. IXIA 10 MG COMPRIMIDOS RECUBIERTOS , 28 COMPRIMIDOS [Concomitant]
     Route: 065
  10. DELTIUS 25.000 UI/2,5 ML SOLUCION ORAL , 4 FRASCOS DE 2,5 ML [Concomitant]
     Route: 065

REACTIONS (2)
  - Dermatitis exfoliative generalised [Unknown]
  - Burning sensation [Unknown]

NARRATIVE: CASE EVENT DATE: 20181108
